FAERS Safety Report 9184593 (Version 2)
Quarter: 2013Q2

REPORT INFORMATION
  Report Type: Spontaneous
  Country: US (occurrence: US)
  Receive Date: 20130324
  Receipt Date: 20130501
  Transmission Date: 20140414
  Serious: Yes (Other)
  Sender: FDA-Public Use
  Company Number: CHPA2013US004965

PATIENT
  Age: 72 Year
  Sex: Female

DRUGS (2)
  1. EXCEDRIN TENSION HEADACHE [Suspect]
     Indication: MIGRAINE
     Dosage: 1 DF, PRN
     Route: 048
  2. GABAPENTIN [Concomitant]
     Indication: MIGRAINE
     Route: 048

REACTIONS (4)
  - Oedema peripheral [Not Recovered/Not Resolved]
  - Bone disorder [Not Recovered/Not Resolved]
  - Arthritis [Not Recovered/Not Resolved]
  - Underdose [Unknown]
